FAERS Safety Report 18991192 (Version 3)
Quarter: 2021Q1

REPORT INFORMATION
  Report Type: Spontaneous
  Country: US (occurrence: US)
  Receive Date: 20210310
  Receipt Date: 20210329
  Transmission Date: 20210420
  Serious: Yes (Hospitalization, Other)
  Sender: FDA-Public Use
  Company Number: US-INCYTE CORPORATION-2021IN001148

PATIENT

DRUGS (20)
  1. JAKAFI [Suspect]
     Active Substance: RUXOLITINIB
     Indication: CHRONIC GRAFT VERSUS HOST DISEASE
     Dosage: 20 MILLIGRAM, QD
     Route: 048
     Dates: start: 20190627
  2. ATOVAQUONE. [Concomitant]
     Active Substance: ATOVAQUONE
     Indication: ANTIBIOTIC PROPHYLAXIS
     Dosage: 1500 MILLIGRAM, QD
     Route: 048
  3. JAKAFI [Suspect]
     Active Substance: RUXOLITINIB
     Indication: CHRONIC GRAFT VERSUS HOST DISEASE IN EYE
     Dosage: 5 MILLIGRAM, QD
     Route: 048
     Dates: start: 202010, end: 202010
  4. ESTRADIOL. [Concomitant]
     Active Substance: ESTRADIOL
     Indication: VAGINAL DISORDER
     Dosage: 0.1 MG/G, NIGHTLY
     Route: 061
  5. JAKAFI [Suspect]
     Active Substance: RUXOLITINIB
     Indication: CHRONIC GRAFT VERSUS HOST DISEASE IN LIVER
     Dosage: 10 MILLIGRAM, BID
     Route: 048
     Dates: start: 20201230
  6. MAGNESIUM OXIDE. [Concomitant]
     Active Substance: MAGNESIUM OXIDE
     Indication: PRODUCT USED FOR UNKNOWN INDICATION
     Dosage: UNK UNK, QD
     Route: 048
  7. CHOLECALCIFEROL [Concomitant]
     Active Substance: CHOLECALCIFEROL
     Indication: PRODUCT USED FOR UNKNOWN INDICATION
     Dosage: 5000 INTERNATIONAL UNIT CAPSULE, Q7 DAYS
     Route: 048
  8. JAKAFI [Suspect]
     Active Substance: RUXOLITINIB
     Indication: CHRONIC GRAFT VERSUS HOST DISEASE IN SKIN
     Dosage: 10 MILLIGRAM, BID
     Route: 048
  9. CALCIUM CARBONATE. [Concomitant]
     Active Substance: CALCIUM CARBONATE
     Indication: PRODUCT USED FOR UNKNOWN INDICATION
     Dosage: 648 MILLIGRAM, QD
     Route: 048
  10. DEXAMETHASONE. [Concomitant]
     Active Substance: DEXAMETHASONE
     Indication: ORAL DISCOMFORT
     Dosage: 0.5 MG/5 ML,  2?4X A DAY
     Route: 048
  11. FOLIC ACID. [Concomitant]
     Active Substance: FOLIC ACID
     Indication: PRODUCT USED FOR UNKNOWN INDICATION
     Dosage: 1 MILLIGRAM, QD
     Route: 048
  12. AZITHROMYCIN ANHYDROUS. [Concomitant]
     Active Substance: AZITHROMYCIN ANHYDROUS
     Indication: ANTIBIOTIC PROPHYLAXIS
     Dosage: 250 MILLIGRAM, QD EVERY MWF
     Route: 048
  13. VALACYCLOVIR [Concomitant]
     Active Substance: VALACYCLOVIR HYDROCHLORIDE
     Indication: ANTIBIOTIC PROPHYLAXIS
     Dosage: 500 MILLIGRAM, BID
     Route: 048
  14. JAKAFI [Suspect]
     Active Substance: RUXOLITINIB
     Indication: CHRONIC GRAFT VERSUS HOST DISEASE ORAL
     Dosage: 5 MILLIGRAM, BID
     Route: 048
     Dates: start: 20200731
  15. ACETAMINOPHEN. [Concomitant]
     Active Substance: ACETAMINOPHEN
     Indication: ARTHRALGIA
     Dosage: 500 MILLIGRAM, 1000 MG 2?3X/WEEK
     Route: 048
  16. ACETAMINOPHEN. [Concomitant]
     Active Substance: ACETAMINOPHEN
     Indication: BACK PAIN
  17. JAKAFI [Suspect]
     Active Substance: RUXOLITINIB
     Indication: TRANSPLANTATION COMPLICATION
     Dosage: 10 MILLIGRAM, BID
     Route: 048
     Dates: start: 20190626
  18. OMEGA 3 FISH OIL [FISH OIL] [Concomitant]
     Indication: PRODUCT USED FOR UNKNOWN INDICATION
     Dosage: 1000 MILLIGRAM, BID
     Route: 048
  19. RECLAST [Concomitant]
     Active Substance: ZOLEDRONIC ACID
     Indication: PRODUCT USED FOR UNKNOWN INDICATION
     Dosage: UNK
     Route: 042
     Dates: start: 201904
  20. RECLAST [Concomitant]
     Active Substance: ZOLEDRONIC ACID
     Dosage: UNK
     Route: 042
     Dates: start: 202006

REACTIONS (27)
  - Meniscus injury [Unknown]
  - Dyspepsia [Recovered/Resolved]
  - Chronic cheek biting [Unknown]
  - Peripheral T-cell lymphoma unspecified recurrent [Unknown]
  - Intestinal obstruction [Unknown]
  - Chronic graft versus host disease [Unknown]
  - Spinal compression fracture [Unknown]
  - Keratitis [Unknown]
  - Arthralgia [Recovering/Resolving]
  - Pruritus [Recovered/Resolved]
  - Anaemia [Unknown]
  - Chronic graft versus host disease in liver [Unknown]
  - Skin discolouration [Unknown]
  - Scalloped tongue [Unknown]
  - Condition aggravated [Unknown]
  - Blood pressure increased [Not Recovered/Not Resolved]
  - Chronic graft versus host disease oral [Unknown]
  - Fracture [Unknown]
  - Rash [Not Recovered/Not Resolved]
  - Ileal stenosis [Unknown]
  - Intestinal fistula [Unknown]
  - Blood count abnormal [Unknown]
  - Off label use [Unknown]
  - Osteonecrosis [Unknown]
  - Terminal ileitis [Unknown]
  - Chronic graft versus host disease in skin [Unknown]
  - Osteoporosis [Unknown]

NARRATIVE: CASE EVENT DATE: 20200728
